FAERS Safety Report 5483860-5 (Version None)
Quarter: 2007Q4

REPORT INFORMATION
  Report Type: 
  Country: None (occurrence: None)
  Receive Date: 20071009
  Receipt Date: 20070927
  Transmission Date: 20080405
  Serious: Yes (Death, Life-Threatening, Hospitalization)
  Sender: FDA-Public Use
  Company Number: 2007-01849

PATIENT
  Age: 75 Year
  Sex: Male
  Weight: 88 kg

DRUGS (11)
  1. VELCADE [Suspect]
     Indication: MULTIPLE MYELOMA
     Dosage: 1.30 MG/M2, INTRAVENOUS
     Route: 042
     Dates: start: 20070227, end: 20070608
  2. METHYLPREDNISOLONE [Concomitant]
  3. ITRACONAZOLE [Concomitant]
  4. CEFTRIAXONE [Concomitant]
  5. MOXIFLOXACIN HCL [Concomitant]
  6. METRONIDAZOLE [Concomitant]
  7. FLUCONAZOLE [Concomitant]
  8. VORICONAZOLE (VORICONAZOLE) [Concomitant]
  9. ERYTHROMYCIN [Concomitant]
  10. VANCOMYCIN [Concomitant]
  11. CILASTATIN SODIUM W/IMIPENEM (IMIPENEM, CILASTATIN SODIUM) [Concomitant]

REACTIONS (8)
  - ABASIA [None]
  - DYSSTASIA [None]
  - FATIGUE [None]
  - ILEUS PARALYTIC [None]
  - MEGACOLON [None]
  - RESPIRATORY TRACT INFECTION [None]
  - SEPSIS [None]
  - THROMBOCYTOPENIA [None]
